FAERS Safety Report 24195690 (Version 2)
Quarter: 2024Q3

REPORT INFORMATION
  Report Type: Spontaneous
  Country: US (occurrence: US)
  Receive Date: 20240809
  Receipt Date: 20240813
  Transmission Date: 20241016
  Serious: No
  Sender: AMGEN
  Company Number: US-AMGEN-USASP2024157953

PATIENT
  Age: 67 Year
  Sex: Female

DRUGS (4)
  1. EVENITY [Suspect]
     Active Substance: ROMOSOZUMAB-AQQG
     Indication: Osteoporosis postmenopausal
     Dosage: 210 MILLIGRAM, QMO
     Route: 058
     Dates: start: 20240612
  2. PROPRANOLOL [Concomitant]
     Active Substance: PROPRANOLOL HYDROCHLORIDE
     Dosage: 10 MILLIGRAM, TID
     Route: 065
     Dates: start: 20240216
  3. FLECAINIDE [Concomitant]
     Active Substance: FLECAINIDE
     Indication: Ventricular tachycardia
     Dosage: 75 MILLIGRAM, BID
     Route: 065
  4. FLECAINIDE [Concomitant]
     Active Substance: FLECAINIDE
     Indication: Arrhythmia

REACTIONS (3)
  - Dizziness [Unknown]
  - Amnesia [Unknown]
  - Vertigo [Unknown]

NARRATIVE: CASE EVENT DATE: 20240101
